FAERS Safety Report 8154425-1 (Version None)
Quarter: 2012Q1

REPORT INFORMATION
  Report Type: 
  Country: None (occurrence: None)
  Receive Date: 20120103
  Receipt Date: 20111027
  Transmission Date: 20120608
  Serious: No
  Sender: FDA-Public Use
  Company Number: AE-2011-002755

PATIENT
  Sex: Female

DRUGS (6)
  1. INCIVEK [Suspect]
     Dosage: 2250 MG (750 MG, 3 IN 1 D)
     Dates: start: 20110810
  2. RIBAVIRIN [Concomitant]
  3. INTERFERON [Concomitant]
  4. MAGIC MOUTH WASH [Concomitant]
  5. ALBUTEROL [Concomitant]
  6. ADVAIR HFA [Concomitant]

REACTIONS (7)
  - ASTHMA [None]
  - NASAL DISORDER [None]
  - ANAEMIA [None]
  - STOMATITIS [None]
  - ANXIETY [None]
  - HAEMORRHOIDS [None]
  - HEADACHE [None]
